FAERS Safety Report 23977774 (Version 4)
Quarter: 2024Q3

REPORT INFORMATION
  Report Type: Report from Study
  Country: US (occurrence: US)
  Receive Date: 20240614
  Receipt Date: 20240820
  Transmission Date: 20241017
  Serious: Yes (Hospitalization)
  Sender: ABBVIE
  Company Number: US-ABBVIE-5797810

PATIENT
  Sex: Male

DRUGS (4)
  1. SKYRIZI [Suspect]
     Active Substance: RISANKIZUMAB-RZAA
     Indication: Crohn^s disease
     Dosage: FORM STRENGTH: 2.4 MILLILITER(S)
     Route: 058
     Dates: start: 202405
  2. SKYRIZI [Suspect]
     Active Substance: RISANKIZUMAB-RZAA
     Indication: Crohn^s disease
     Dosage: FORM STRENGTH: 600 MILLIGRAM,?FREQUENCY TEXT:  WEEK 8
     Route: 042
     Dates: start: 202403, end: 202403
  3. SKYRIZI [Suspect]
     Active Substance: RISANKIZUMAB-RZAA
     Indication: Crohn^s disease
     Dosage: FORM STRENGTH: 600 MILLIGRAM,?FREQUENCY TEXT: WEEK 4
     Route: 042
     Dates: start: 202402, end: 202402
  4. SKYRIZI [Suspect]
     Active Substance: RISANKIZUMAB-RZAA
     Indication: Crohn^s disease
     Dosage: FORM STRENGTH: 600 MILLIGRAM,?FREQUENCY TEXT: WEEK 0
     Route: 042
     Dates: start: 20240126, end: 20240126

REACTIONS (8)
  - Haematemesis [Recovered/Resolved]
  - Vomiting [Unknown]
  - Constipation [Unknown]
  - Duodenal ulcer [Recovering/Resolving]
  - Night sweats [Not Recovered/Not Resolved]
  - Thrombosis [Recovering/Resolving]
  - Histoplasmosis [Unknown]
  - Gastric pH decreased [Unknown]

NARRATIVE: CASE EVENT DATE: 20240101
